FAERS Safety Report 21252588 (Version 1)
Quarter: 2022Q3

REPORT INFORMATION
  Report Type: Spontaneous
  Country: US (occurrence: US)
  Receive Date: 20220825
  Receipt Date: 20220825
  Transmission Date: 20221027
  Serious: No
  Sender: FDA-Public Use
  Company Number: US-MAYNE PHARMA-2022MYN000376

PATIENT
  Sex: Male

DRUGS (1)
  1. CLONIDINE [Suspect]
     Active Substance: CLONIDINE
     Indication: Attention deficit hyperactivity disorder
     Dosage: 0.2 MG, QWEEK
     Route: 062

REACTIONS (2)
  - Product adhesion issue [Recovered/Resolved]
  - Skin irritation [Recovered/Resolved]
